FAERS Safety Report 13845344 (Version 2)
Quarter: 2017Q3

REPORT INFORMATION
  Report Type: Spontaneous
  Country: DE (occurrence: DE)
  Receive Date: 20170808
  Receipt Date: 20170922
  Transmission Date: 20171127
  Serious: Yes (Hospitalization, Other)
  Sender: FDA-Public Use
  Company Number: DE-BAYER-2017-151497

PATIENT
  Age: 38 Year
  Sex: Female

DRUGS (1)
  1. MIRENA [Suspect]
     Active Substance: LEVONORGESTREL
     Indication: CONTRACEPTION
     Dosage: 20 MCG/24HR, CONT
     Route: 015

REACTIONS (5)
  - Device breakage [None]
  - Pregnancy with contraceptive device [Recovered/Resolved]
  - Caesarean section [Recovered/Resolved]
  - Device dislocation [None]
  - Drug ineffective [None]

NARRATIVE: CASE EVENT DATE: 20161012
